FAERS Safety Report 19890864 (Version 1)
Quarter: 2021Q3

REPORT INFORMATION
  Report Type: Spontaneous
  Country: US (occurrence: US)
  Receive Date: 20210928
  Receipt Date: 20210928
  Transmission Date: 20211014
  Serious: Yes (Other)
  Sender: FDA-Public Use
  Company Number: US-BAYER-2021A216924

PATIENT
  Age: 66 Year
  Sex: Female

DRUGS (2)
  1. SORAFENIB (RAF KINASE INHIBITOR) [Suspect]
     Active Substance: SORAFENIB
     Indication: HEPATOCELLULAR CARCINOMA
     Dosage: 400 MG, BID
     Route: 048
  2. OCTREOTIDE. [Suspect]
     Active Substance: OCTREOTIDE
     Indication: NEUROENDOCRINE TUMOUR
     Dosage: 30 MG, Q4WK
     Route: 030

REACTIONS (6)
  - Weight decreased [None]
  - Nausea [None]
  - Hydronephrosis [None]
  - Metastases to lung [None]
  - Secondary hypertension [None]
  - Metastases to liver [None]
